FAERS Safety Report 5557780-1 (Version None)
Quarter: 2007Q4

REPORT INFORMATION
  Report Type: 
  Country: None (occurrence: None)
  Receive Date: 20071214
  Receipt Date: 20071206
  Transmission Date: 20080405
  Serious: Yes (Hospitalization)
  Sender: FDA-Public Use
  Company Number: DE-WYE-G00735507

PATIENT

DRUGS (2)
  1. TREVILOR [Suspect]
     Dosage: UNKNOWN
     Route: 064
     Dates: end: 20071201
  2. TREVILOR [Suspect]
     Dosage: UNKNOWN
     Route: 063
     Dates: start: 20071201

REACTIONS (4)
  - AGITATION NEONATAL [None]
  - DRUG EXPOSURE DURING PREGNANCY [None]
  - DRUG EXPOSURE VIA BREAST MILK [None]
  - MYOCLONUS [None]
